FAERS Safety Report 21891279 (Version 2)
Quarter: 2023Q1

REPORT INFORMATION
  Report Type: Spontaneous
  Country: US (occurrence: US)
  Receive Date: 20230120
  Receipt Date: 20230313
  Transmission Date: 20230418
  Serious: No
  Sender: FDA-Public Use
  Company Number: US-TAKEDA-2023TUS004483

PATIENT
  Sex: Female

DRUGS (1)
  1. TRINTELLIX [Suspect]
     Active Substance: VORTIOXETINE HYDROBROMIDE
     Indication: Product used for unknown indication
     Dosage: 10 MILLIGRAM, QD
     Route: 048
     Dates: start: 20230112

REACTIONS (5)
  - Blood pressure decreased [Recovered/Resolved]
  - Dizziness postural [Recovered/Resolved]
  - Vision blurred [Recovering/Resolving]
  - Asthenia [Recovered/Resolved]
  - Dizziness [Unknown]
